FAERS Safety Report 20500670 (Version 3)
Quarter: 2022Q1

REPORT INFORMATION
  Report Type: Spontaneous
  Country: US (occurrence: US)
  Receive Date: 20220222
  Receipt Date: 20220302
  Transmission Date: 20220424
  Serious: No
  Sender: FDA-Public Use
  Company Number: US-SA-2022SA052329

PATIENT
  Age: 54 Year
  Sex: Female

DRUGS (13)
  1. DUPIXENT [Suspect]
     Active Substance: DUPILUMAB
     Indication: Asthma
     Dosage: DUPIXENT 300 MG/2 ML PEN ,INJECT 2 PENS UNDER THE SKIN ON DAY 1
     Route: 058
     Dates: start: 20220128
  2. DUPIXENT [Suspect]
     Active Substance: DUPILUMAB
     Dosage: DUPIXENT 300 MG/2 ML PEN,1 PEN ONCE EVERY 14 DAYS
     Route: 058
  3. LISINOPRIL [Concomitant]
     Active Substance: LISINOPRIL
  4. CLARITHROMYCIN [Concomitant]
     Active Substance: CLARITHROMYCIN
  5. SINGULAIR [Concomitant]
     Active Substance: MONTELUKAST SODIUM
  6. BUDESONIDE [Concomitant]
     Active Substance: BUDESONIDE
  7. ESTRADIOL [Concomitant]
     Active Substance: ESTRADIOL
  8. AZITHROMYCIN [Concomitant]
     Active Substance: AZITHROMYCIN
  9. VITAMIN D3 [Concomitant]
     Active Substance: CHOLECALCIFEROL
  10. CALCIUM [Concomitant]
     Active Substance: CALCIUM
  11. IRON [Concomitant]
     Active Substance: IRON
  12. ESTROGEL [Concomitant]
     Active Substance: ESTRADIOL
  13. DEXAMETHASONE [Concomitant]
     Active Substance: DEXAMETHASONE

REACTIONS (4)
  - Respiration abnormal [Recovering/Resolving]
  - Product use issue [Unknown]
  - Incorrect dose administered [Unknown]
  - Product administration error [Unknown]

NARRATIVE: CASE EVENT DATE: 20220215
